FAERS Safety Report 7488711-5 (Version None)
Quarter: 2011Q2

REPORT INFORMATION
  Report Type: 
  Country: None (occurrence: None)
  Receive Date: 20110518
  Receipt Date: 20110513
  Transmission Date: 20111010
  Serious: Yes (Life-Threatening, Hospitalization)
  Sender: FDA-Public Use
  Company Number: Z0003680A

PATIENT
  Sex: Female
  Weight: 73 kg

DRUGS (23)
  1. DOBUTAMINE HYDROCHLORIDE [Concomitant]
     Indication: SEPTIC SHOCK
     Route: 042
     Dates: start: 20100501, end: 20100520
  2. CLAFORAN [Concomitant]
     Dosage: 1G EVERY 3 DAYS
     Route: 042
     Dates: end: 20100520
  3. PIPERACILLIN AND TAZOBACTAM [Concomitant]
     Dosage: 4G THREE TIMES PER DAY
     Route: 042
     Dates: start: 20100520, end: 20100526
  4. PRIMPERAN TAB [Concomitant]
     Indication: NAUSEA
     Dosage: 10MG THREE TIMES PER DAY
     Route: 042
     Dates: start: 20100516, end: 20100517
  5. ACETAMINOPHEN [Concomitant]
     Indication: PAIN
     Route: 042
     Dates: start: 20100516, end: 20100518
  6. LASIX [Concomitant]
     Indication: HYPERTENSION
     Dosage: 40MG PER DAY
     Route: 048
     Dates: end: 20100728
  7. RAMIPRIL [Concomitant]
     Indication: HYPERTENSION
     Dosage: 2.5MG PER DAY
     Route: 048
  8. TIENAM [Concomitant]
     Indication: KIDNEY INFECTION
     Dosage: 500MG THREE TIMES PER DAY
     Route: 042
     Dates: start: 20100331, end: 20100406
  9. LEXOMIL [Concomitant]
     Indication: ANXIETY
     Dosage: 6MG AT NIGHT
     Route: 048
     Dates: start: 20100301
  10. ROCEPHIN [Concomitant]
     Indication: INFECTION
     Dosage: 1G SINGLE DOSE
     Route: 030
     Dates: start: 20100501
  11. AMLODIPINE BESYLATE [Concomitant]
     Indication: HYPERTENSION
     Dosage: 5MG PER DAY
     Route: 048
  12. ATORVASTATIN CALCIUM [Concomitant]
     Dosage: 10MG PER DAY
     Route: 048
  13. CORDARONE [Concomitant]
     Indication: VENTRICULAR TACHYCARDIA
     Dosage: 1UNIT FOUR TIMES PER DAY
     Route: 048
  14. NEXIUM [Concomitant]
     Dosage: 20MG PER DAY
     Route: 048
     Dates: start: 20100501
  15. CARDENSIEL [Concomitant]
     Dosage: 2.5MG PER DAY
     Route: 048
     Dates: start: 20100501
  16. VALSARTAN [Concomitant]
     Indication: HYPERTENSION
     Dosage: 80MG PER DAY
     Route: 048
  17. ALDACTONE [Concomitant]
     Dosage: 25MG PER DAY
     Route: 048
     Dates: start: 20100501
  18. NORADRENALINE [Concomitant]
     Indication: CIRCULATORY COLLAPSE
     Dosage: 1MG TWENTY FOUR TIMES PER DAY
     Route: 042
     Dates: start: 20100501, end: 20100520
  19. OFLOXACIN [Concomitant]
     Dosage: 200MG PER DAY
     Route: 042
     Dates: start: 20100501, end: 20100501
  20. PAZOPANIB [Suspect]
     Indication: OVARIAN CANCER
     Route: 048
     Dates: start: 20100212
  21. INDAPAMIDE [Concomitant]
     Indication: HYPERTENSION
     Dosage: 1.5MG PER DAY
     Route: 048
  22. ASPIRIN [Concomitant]
     Indication: ANTICOAGULANT THERAPY
     Dosage: 75MG PER DAY
     Route: 048
     Dates: start: 20100501
  23. CALCIPARINE [Concomitant]
     Dosage: 1.6 PER DAY
     Route: 042
     Dates: start: 20100301, end: 20100101

REACTIONS (3)
  - SEPTIC SHOCK [None]
  - PYELONEPHRITIS [None]
  - CARDIOMYOPATHY [None]
